FAERS Safety Report 5265190-X (Version None)
Quarter: 2007Q1

REPORT INFORMATION
  Report Type: 
  Country: None (occurrence: None)
  Receive Date: 20061213
  Receipt Date: 20040504
  Transmission Date: 20070707
  Serious: No
  Sender: FDA-Public Use
  Company Number: 2004UW00027

PATIENT
  Age: 45 Year
  Sex: Female
  Weight: 61.2356 kg

DRUGS (1)
  1. TAMOXIFEN CITRATE [Suspect]
     Indication: BREAST CANCER
     Dosage: 40 MG QD PO
     Route: 048
     Dates: start: 19971001, end: 20021001

REACTIONS (4)
  - AMENORRHOEA [None]
  - ENDOMETRIAL HYPERTROPHY [None]
  - POSTMENOPAUSAL HAEMORRHAGE [None]
  - UTERINE POLYP [None]
